FAERS Safety Report 5319461-9 (Version None)
Quarter: 2007Q2

REPORT INFORMATION
  Report Type: 
  Country: None (occurrence: None)
  Receive Date: 20070508
  Receipt Date: 20070424
  Transmission Date: 20071010
  Serious: Yes (Death, Hospitalization)
  Sender: FDA-Public Use
  Company Number: ES-GENENTECH-214943

PATIENT
  Sex: Male
  Weight: 114 kg

DRUGS (5)
  1. BEVACIZUMAB [Suspect]
     Indication: COLORECTAL CANCER METASTATIC
     Dosage: 855 MG, Q3W
     Route: 042
     Dates: start: 20050228, end: 20050322
  2. CAPECITABINE [Concomitant]
     Indication: COLORECTAL CANCER METASTATIC
     Dates: start: 20050228, end: 20050322
  3. OXALIPLATIN [Concomitant]
     Indication: COLORECTAL CANCER METASTATIC
  4. ACE-INHIBITOR [Concomitant]
     Indication: HYPERTENSION
     Dates: end: 20050325
  5. DIURETIC NOS [Concomitant]
     Indication: HYPERTENSION
     Dates: end: 20050325

REACTIONS (1)
  - MYOCARDIAL INFARCTION [None]
